FAERS Safety Report 5294525-7 (Version None)
Quarter: 2007Q2

REPORT INFORMATION
  Report Type: 
  Country: None (occurrence: None)
  Receive Date: 20070409
  Receipt Date: 20070409
  Transmission Date: 20071010
  Serious: Yes (Life-Threatening, Hospitalization)
  Sender: FDA-Public Use
  Company Number: None

PATIENT
  Age: 21 Year
  Sex: Male
  Weight: 65.7716 kg

DRUGS (1)
  1. CIPROFLOXACIN 10 MG/ML BAYER PHARMACEUTICALS/SCH [Suspect]
     Indication: SURGERY
     Dosage: 400MG IV DRIP
     Route: 041
     Dates: start: 20070406, end: 20070406

REACTIONS (8)
  - ANAPHYLACTOID REACTION [None]
  - BLOOD PRESSURE DECREASED [None]
  - LIP SWELLING [None]
  - ORBITAL OEDEMA [None]
  - PROCEDURAL COMPLICATION [None]
  - RESPIRATORY DISORDER [None]
  - TACHYCARDIA [None]
  - URTICARIA [None]
